FAERS Safety Report 8186452-2 (Version None)
Quarter: 2012Q1

REPORT INFORMATION
  Report Type: 
  Country: None (occurrence: None)
  Receive Date: 20120301
  Receipt Date: 20120215
  Transmission Date: 20120608
  Serious: Yes (Other)
  Sender: FDA-Public Use
  Company Number: 2012HGS-003303

PATIENT
  Age: 38 Year
  Sex: Female
  Weight: 63 kg

DRUGS (4)
  1. PREDNISONE TAB [Concomitant]
  2. IMURAN [Concomitant]
  3. BENLYSTA [Suspect]
     Indication: SYSTEMIC LUPUS ERYTHEMATOSUS
     Dosage: 600 MG,  1 N 4 WK, INTRAVENOUS
     Route: 042
     Dates: start: 20111121
  4. BENLYSTA [Suspect]

REACTIONS (1)
  - MIGRAINE [None]
